FAERS Safety Report 4830676-6 (Version None)
Quarter: 2005Q4

REPORT INFORMATION
  Report Type: 
  Country: None (occurrence: None)
  Receive Date: 20051117
  Receipt Date: 20051107
  Transmission Date: 20060501
  Serious: Yes (Other)
  Sender: FDA-Public Use
  Company Number: PHBS2005JP16423

PATIENT
  Age: 74 Year
  Sex: Male

DRUGS (1)
  1. TEGRETOL [Suspect]
     Indication: CANCER PAIN
     Dosage: 100 MG/DAY
     Route: 065

REACTIONS (4)
  - ABNORMAL BEHAVIOUR [None]
  - CONFUSIONAL STATE [None]
  - DISTURBANCE IN ATTENTION [None]
  - DYSSTASIA [None]
